FAERS Safety Report 8337046-7 (Version None)
Quarter: 2012Q2

REPORT INFORMATION
  Report Type: 
  Country: None (occurrence: None)
  Receive Date: 20120504
  Receipt Date: 20110627
  Transmission Date: 20120825
  Serious: No
  Sender: FDA-Public Use
  Company Number: US-TEVA-2011003377

PATIENT
  Sex: Female

DRUGS (2)
  1. MIRAPEX [Concomitant]
     Dates: start: 20110526
  2. NUVIGIL [Suspect]
     Route: 048
     Dates: start: 20110622, end: 20110601

REACTIONS (2)
  - BLISTER [None]
  - RASH [None]
